FAERS Safety Report 17017494 (Version 1)
Quarter: 2019Q4

REPORT INFORMATION
  Report Type: Spontaneous
  Country: US (occurrence: US)
  Receive Date: 20191004
  Receipt Date: 20191004
  Transmission Date: 20200122
  Serious: Yes (Hospitalization)
  Sender: FDA-Public Use
  Company Number: None

PATIENT
  Age: 66 Year
  Sex: Female
  Weight: 67.6 kg

DRUGS (2)
  1. BEVACIZUMAB (RHUMAB VEGF) [Suspect]
     Active Substance: BEVACIZUMAB
     Dates: start: 20181219, end: 20190605
  2. DOXIL [Suspect]
     Active Substance: DOXORUBICIN HYDROCHLORIDE
     Dates: start: 20181219, end: 20190605

REACTIONS (6)
  - Fatigue [None]
  - Nausea [None]
  - Headache [None]
  - Stomatitis [None]
  - Retching [None]
  - Eating disorder [None]

NARRATIVE: CASE EVENT DATE: 20190701
